FAERS Safety Report 5017447-5 (Version None)
Quarter: 2006Q2

REPORT INFORMATION
  Report Type: 
  Country: None (occurrence: None)
  Receive Date: 20060601
  Receipt Date: 20060601
  Transmission Date: 20061013
  Serious: Yes (Other)
  Sender: FDA-Public Use
  Company Number: None

PATIENT
  Sex: Female
  Weight: 71.2147 kg

DRUGS (4)
  1. INDERAL [Suspect]
     Indication: MIGRAINE
     Dosage: 10MG QHS PO
     Route: 048
     Dates: start: 20060425, end: 20060427
  2. INDERAL [Suspect]
     Indication: MIGRAINE
     Dosage: 10MG QHS PO
     Route: 048
     Dates: start: 20060504, end: 20060506
  3. LEXAPRO [Concomitant]
  4. HYDROCHLOROTHIAZIDE [Concomitant]

REACTIONS (1)
  - EPISTAXIS [None]
